FAERS Safety Report 25030539 (Version 2)
Quarter: 2025Q2

REPORT INFORMATION
  Report Type: Spontaneous
  Country: US (occurrence: US)
  Receive Date: 20250303
  Receipt Date: 20250414
  Transmission Date: 20250717
  Serious: Yes (Hospitalization, Other)
  Sender: JOHNSON AND JOHNSON
  Company Number: US-JNJFOC-20241158318

PATIENT
  Age: 65 Year
  Sex: Male

DRUGS (1)
  1. CARVYKTI [Suspect]
     Active Substance: CILTACABTAGENE AUTOLEUCEL
     Indication: Product used for unknown indication
     Route: 065

REACTIONS (13)
  - Complication associated with device [Unknown]
  - Hospitalisation [Unknown]
  - Disease progression [Unknown]
  - Infection [Recovered/Resolved]
  - Thrombosis [Unknown]
  - Adverse event [Unknown]
  - Incoherent [Unknown]
  - Fatigue [Recovering/Resolving]
  - Pain [Unknown]
  - Anxiety [Unknown]
  - Depression [Unknown]
  - Dysphagia [Unknown]
  - Unevaluable event [Unknown]

NARRATIVE: CASE EVENT DATE: 20241118
